FAERS Safety Report 4565289-7 (Version None)
Quarter: 2005Q1

REPORT INFORMATION
  Report Type: 
  Country: None (occurrence: None)
  Receive Date: 20050126
  Receipt Date: 20050126
  Transmission Date: 20050727
  Serious: Yes (Other)
  Sender: FDA-Public Use
  Company Number: None

PATIENT
  Age: 75 Year
  Sex: Male
  Weight: 73.5 kg

DRUGS (2)
  1. IMMUNOGLOBULINS [Suspect]
     Dosage: 12G, INFUSE,  IV
     Route: 042
     Dates: start: 20030825, end: 20040308
  2. IMMUNE GLOBULIN (HUMAN) [Concomitant]

REACTIONS (6)
  - CHILLS [None]
  - HYPOTENSION [None]
  - NAUSEA [None]
  - TREMOR [None]
  - VOMITING [None]
  - WHEEZING [None]
